FAERS Safety Report 24949746 (Version 1)
Quarter: 2025Q1

REPORT INFORMATION
  Report Type: Spontaneous
  Country: US (occurrence: None)
  Receive Date: 20250207
  Receipt Date: 20250207
  Transmission Date: 20250409
  Serious: Yes (Death)
  Sender: FDA-CTU
  Company Number: None

PATIENT
  Age: 41 Year
  Weight: 42.75 kg

DRUGS (1)
  1. COBENFY [Suspect]
     Active Substance: TROSPIUM CHLORIDE\XANOMELINE
     Indication: Schizophrenia
     Dates: start: 20250117

REACTIONS (5)
  - General physical health deterioration [None]
  - Hypophagia [None]
  - Bedridden [None]
  - Weight decreased [None]
  - Gait disturbance [None]

NARRATIVE: CASE EVENT DATE: 20250129
